FAERS Safety Report 14730286 (Version 1)
Quarter: 2018Q2

REPORT INFORMATION
  Report Type: Spontaneous
  Country: US (occurrence: US)
  Receive Date: 20180406
  Receipt Date: 20180406
  Transmission Date: 20180711
  Serious: No
  Sender: FDA-Public Use
  Company Number: US-MYLANLABS-2018M1017813

PATIENT
  Sex: Female

DRUGS (1)
  1. FENTANYL TRANSDERMAL SYSTEM [Suspect]
     Active Substance: FENTANYL
     Indication: VULVOVAGINAL PAIN
     Dosage: 1 DF, UNK
     Route: 062
     Dates: start: 20180301

REACTIONS (2)
  - Product adhesion issue [Unknown]
  - Drug ineffective [Recovered/Resolved]
